FAERS Safety Report 4311056-9 (Version None)
Quarter: 2004Q1

REPORT INFORMATION
  Report Type: 
  Country: None (occurrence: None)
  Receive Date: 20040302
  Receipt Date: 20040218
  Transmission Date: 20041129
  Serious: Yes (Other)
  Sender: FDA-Public Use
  Company Number: 2004010841

PATIENT
  Age: 57 Year
  Sex: Female
  Weight: 68.0396 kg

DRUGS (9)
  1. NEURONTIN [Suspect]
     Indication: ANXIETY
     Dosage: 1800 MG (600 MG TID), ORAL
     Route: 048
     Dates: start: 20010101
  2. TOPIRAMATE [Suspect]
     Indication: ILL-DEFINED DISORDER
     Dosage: ORAL
     Route: 048
     Dates: start: 20020101, end: 20020101
  3. DRUG UNSPECIFIED [Suspect]
     Indication: SURGERY
  4. ESCITALOPRAM (ESCITALOPRAM) [Suspect]
     Indication: DEPRESSED MOOD
     Dosage: 10 MG (DAILY),
     Dates: start: 20030101, end: 20040101
  5. CITALOPRAM HYDROBROMIDE (CITALOPRAM HYDROBROMIDE) [Suspect]
     Indication: ILL-DEFINED DISORDER
     Dates: start: 20030101
  6. LEVOTHYROXINE SODIUM [Concomitant]
  7. PHENOBARBITAL TAB [Concomitant]
  8. ALPRAZOLAM [Concomitant]
  9. CLONAZEPAM [Concomitant]

REACTIONS (15)
  - ANXIETY [None]
  - CONDITION AGGRAVATED [None]
  - DELAYED RECOVERY FROM ANAESTHESIA [None]
  - DEPRESSED MOOD [None]
  - DIPLOPIA [None]
  - DRUG INEFFECTIVE [None]
  - DYSPNOEA [None]
  - EPILEPTIC AURA [None]
  - GRAND MAL CONVULSION [None]
  - HOT FLUSH [None]
  - LIVER FUNCTION TEST ABNORMAL [None]
  - LOSS OF CONSCIOUSNESS [None]
  - NERVE INJURY [None]
  - VISION BLURRED [None]
  - WEIGHT INCREASED [None]
